FAERS Safety Report 19661729 (Version 1)
Quarter: 2021Q3

REPORT INFORMATION
  Report Type: Spontaneous
  Country: US (occurrence: US)
  Receive Date: 20210805
  Receipt Date: 20210805
  Transmission Date: 20211014
  Serious: Yes (Other)
  Sender: FDA-Public Use
  Company Number: US-ACCORD-189024

PATIENT
  Age: 50 Year
  Sex: Female
  Weight: 90.72 kg

DRUGS (7)
  1. DOCETAXEL ACCORD [Suspect]
     Active Substance: DOCETAXEL
     Indication: INVASIVE DUCTAL BREAST CARCINOMA
     Dosage: EVERY THREE WEEKS
     Dates: start: 20170310, end: 20170512
  2. CYTOXAN [Suspect]
     Active Substance: CYCLOPHOSPHAMIDE
     Indication: INVASIVE DUCTAL BREAST CARCINOMA
     Dosage: EVERY THREE WEEKS
     Dates: start: 20170310, end: 20170512
  3. GLIPIZIDE. [Concomitant]
     Active Substance: GLIPIZIDE
     Dosage: STRENGTH: 5 MG
     Dates: start: 20151106
  4. HYDROCHLOROTHIAZIDE/LISINOPRIL [Concomitant]
     Active Substance: HYDROCHLOROTHIAZIDE\LISINOPRIL
     Dosage: STRENGTH:  10/12.5 MG
     Dates: start: 20151106
  5. ANASTROZOLE. [Concomitant]
     Active Substance: ANASTROZOLE
     Dosage: STRENGTH: 1 MG
     Dates: start: 20170911
  6. GLIPIZIDE. [Concomitant]
     Active Substance: GLIPIZIDE
     Dosage: STRENGTH: 5 MG
     Dates: start: 20141024, end: 20170205
  7. HYDROCHLOROTHIAZIDE/LISINOPRIL [Concomitant]
     Active Substance: HYDROCHLOROTHIAZIDE\LISINOPRIL
     Dosage: STRENGTH:  10/12.5 MG
     Dates: start: 20140212, end: 20170104

REACTIONS (1)
  - Alopecia [Not Recovered/Not Resolved]

NARRATIVE: CASE EVENT DATE: 20170331
